FAERS Safety Report 5704711-7 (Version None)
Quarter: 2008Q2

REPORT INFORMATION
  Report Type: 
  Country: None (occurrence: None)
  Receive Date: 20080414
  Receipt Date: 20080402
  Transmission Date: 20081010
  Serious: Yes (Other)
  Sender: FDA-Public Use
  Company Number: BE-PFIZER INC-2008025718

PATIENT
  Age: 33 Year
  Sex: Male
  Weight: 60 kg

DRUGS (7)
  1. LYRICA [Suspect]
     Indication: NEURALGIA
     Route: 048
  2. CANRENOL [Concomitant]
  3. PERINDOPRIL ERBUMINE [Concomitant]
  4. SINTROM [Concomitant]
  5. DURAGESIC-100 [Concomitant]
  6. MORPHINE [Concomitant]
  7. ISOTEN [Concomitant]

REACTIONS (2)
  - EJECTION FRACTION DECREASED [None]
  - OEDEMA PERIPHERAL [None]
